FAERS Safety Report 5210486-0 (Version None)
Quarter: 2007Q1

REPORT INFORMATION
  Report Type: 
  Country: None (occurrence: None)
  Receive Date: 20070117
  Receipt Date: 20070105
  Transmission Date: 20070707
  Serious: Yes (Death, Life-Threatening)
  Sender: FDA-Public Use
  Company Number: US-ROCHE-477664

PATIENT
  Age: 21 Year
  Sex: Male
  Weight: 58 kg

DRUGS (6)
  1. PEGASYS [Suspect]
     Dosage: FREQUENCY REPORTED AS EVERY WEEK.
     Route: 058
     Dates: start: 20040215, end: 20041115
  2. REBETOL [Suspect]
     Route: 048
     Dates: start: 20040215, end: 20041115
  3. NEUMEGA [Suspect]
     Indication: THROMBOCYTOPENIA
     Route: 065
  4. ALDACTONE [Concomitant]
     Indication: ASCITES
     Dates: start: 20041015, end: 20041115
  5. RIFAXIMIN [Concomitant]
     Indication: ENCEPHALOPATHY
     Dates: start: 20041015, end: 20041115
  6. EPOGEN [Concomitant]
     Dosage: FREQUENCY REPORTED AS EVERY WEEK.
     Dates: start: 20040715, end: 20041115

REACTIONS (9)
  - ABNORMAL BEHAVIOUR [None]
  - ANAEMIA [None]
  - CARDIAC FAILURE [None]
  - CARDIOMYOPATHY [None]
  - ENCEPHALOPATHY [None]
  - MULTI-ORGAN FAILURE [None]
  - NEUTROPENIA [None]
  - SEPSIS [None]
  - THROMBOCYTOPENIA [None]
